FAERS Safety Report 9607734 (Version 1)
Quarter: 2013Q4

REPORT INFORMATION
  Report Type: Spontaneous
  Country: US (occurrence: None)
  Receive Date: 20131008
  Receipt Date: 20131008
  Transmission Date: 20140711
  Serious: Yes (Other)
  Sender: FDA-Public Use
  Company Number: None

PATIENT
  Age: 64 Year
  Sex: Female
  Weight: 75 kg

DRUGS (7)
  1. PRIVIGEN [Suspect]
     Indication: HYPOGAMMAGLOBULINAEMIA
     Dosage: 20 GRAM + 10 GRAM = 30 GRAMS W INFUSION, 3-4 HOURS, IV
     Route: 042
     Dates: start: 20130816
  2. LOSARTAN [Concomitant]
  3. LEVOTHYROXINE [Concomitant]
  4. XANAX [Concomitant]
  5. CYMBALTA [Concomitant]
  6. ADVAIR [Concomitant]
  7. NASONEX [Concomitant]

REACTIONS (2)
  - Rash maculo-papular [None]
  - Skin exfoliation [None]
